FAERS Safety Report 23292952 (Version 2)
Quarter: 2023Q4

REPORT INFORMATION
  Report Type: Report from Study
  Country: IE (occurrence: IE)
  Receive Date: 20231213
  Receipt Date: 20231218
  Transmission Date: 20240110
  Serious: Yes (Hospitalization)
  Sender: FDA-Public Use
  Company Number: IE-AstraZeneca-2023A236020

PATIENT
  Age: 327 Day
  Sex: Female

DRUGS (2)
  1. SYNAGIS [Suspect]
     Active Substance: PALIVIZUMAB
     Indication: Premature baby
     Dosage: ONCE IN 4 WEEKS
     Route: 030
     Dates: start: 20231011
  2. SYNAGIS [Suspect]
     Active Substance: PALIVIZUMAB
     Dosage: ONCE IN 4 WEEKS
     Route: 030
     Dates: start: 20231108, end: 20231108

REACTIONS (5)
  - Malaise [Not Recovered/Not Resolved]
  - Pyrexia [Not Recovered/Not Resolved]
  - Respiratory syncytial virus infection [Not Recovered/Not Resolved]
  - Drug ineffective [Unknown]
  - Off label use [Unknown]

NARRATIVE: CASE EVENT DATE: 20231129
